FAERS Safety Report 6727472-1 (Version None)
Quarter: 2010Q2

REPORT INFORMATION
  Report Type: 
  Country: None (occurrence: None)
  Receive Date: 20100517
  Receipt Date: 20100506
  Transmission Date: 20101027
  Serious: Yes (Hospitalization, Other)
  Sender: FDA-Public Use
  Company Number: BR-SANOFI-AVENTIS-2010SA026528

PATIENT
  Age: 18 Year
  Sex: Male
  Weight: 64 kg

DRUGS (5)
  1. LANTUS [Suspect]
     Indication: TYPE 1 DIABETES MELLITUS
     Route: 058
     Dates: end: 20100101
  2. LANTUS [Suspect]
     Route: 058
     Dates: end: 20100101
  3. LANTUS [Suspect]
     Route: 058
     Dates: start: 20100101
  4. OPTIPEN [Suspect]
  5. NOVORAPID [Concomitant]
     Indication: TYPE 1 DIABETES MELLITUS
     Dosage: ACCORDING TO GLYCEMIA
     Route: 058

REACTIONS (6)
  - ABDOMINAL PAIN [None]
  - DIABETES MELLITUS INADEQUATE CONTROL [None]
  - DIABETIC KETOACIDOSIS [None]
  - PANCREATITIS [None]
  - VOMITING [None]
  - WEIGHT DECREASED [None]
